FAERS Safety Report 4393869-0 (Version None)
Quarter: 2004Q3

REPORT INFORMATION
  Report Type: 
  Country: None (occurrence: None)
  Receive Date: 20040702
  Receipt Date: 20040621
  Transmission Date: 20050211
  Serious: Yes (Hospitalization)
  Sender: FDA-Public Use
  Company Number: 04P-163-0264752

PATIENT
  Age: 44 Year
  Sex: Female
  Weight: 81.6475 kg

DRUGS (2)
  1. HUMIRA [Suspect]
     Indication: RHEUMATOID ARTHRITIS
     Dosage: 40 MG, 1 IN 2 WK, SUBCUTANEOUS
     Route: 058
     Dates: start: 20040604, end: 20040604
  2. PIROXICAM [Concomitant]

REACTIONS (2)
  - LYMPH GLAND INFECTION [None]
  - OEDEMA PERIPHERAL [None]
